FAERS Safety Report 7134072-0 (Version None)
Quarter: 2010Q4

REPORT INFORMATION
  Report Type: 
  Country: None (occurrence: None)
  Receive Date: 20101117
  Receipt Date: 20101102
  Transmission Date: 20110411
  Serious: Yes (Hospitalization)
  Sender: FDA-Public Use
  Company Number: DSM-2010-01617

PATIENT
  Age: 81 Year
  Sex: Female

DRUGS (4)
  1. OLMETEC (OLMESARTAN MEDOXOMIL) (TABLET) (OLMESARTAN MEDOXOMIL) [Suspect]
     Indication: HYPERTENSION
     Dosage: ORAL
     Route: 048
     Dates: start: 20080101, end: 20100709
  2. DEPAMIDE (VALPROMIDE) (300 MILLIGRAM, TABLET) (VALPROMIDE) [Suspect]
     Indication: MENTAL DISORDER
     Dosage: ORAL
     Route: 048
     Dates: start: 20100401, end: 20100709
  3. EFFEXOR (VENLAFAXINE) (VENLAFAXINE) [Concomitant]
  4. INEXIUM (ESOMEPRAZOLE MAGNESIUM) (ESOMEPRAZOLE MAGNESIUM) [Concomitant]

REACTIONS (5)
  - ANXIETY [None]
  - DECREASED APPETITE [None]
  - DEPRESSION [None]
  - MENTAL DISORDER [None]
  - THROMBOCYTOPENIA [None]
